FAERS Safety Report 25776965 (Version 1)
Quarter: 2025Q3

REPORT INFORMATION
  Report Type: Spontaneous
  Country: US (occurrence: US)
  Receive Date: 20250909
  Receipt Date: 20250909
  Transmission Date: 20251021
  Serious: No
  Sender: DOMPE FARMACEUTICI
  Company Number: US-FARMAPROD-202409-3342

PATIENT
  Sex: Female

DRUGS (5)
  1. OXERVATE [Suspect]
     Active Substance: CENEGERMIN-BKBJ
     Indication: Neurotrophic keratopathy
     Route: 047
     Dates: start: 20240617, end: 20240812
  2. OXERVATE [Suspect]
     Active Substance: CENEGERMIN-BKBJ
     Route: 047
     Dates: start: 20240829
  3. RESTASIS [Concomitant]
     Active Substance: CYCLOSPORINE
  4. TYRVAYA [Concomitant]
     Active Substance: VARENICLINE TARTRATE
  5. GENTEAL TEARS SEVERE [Concomitant]
     Active Substance: HYPROMELLOSE 2910 (4000 MPA.S)

REACTIONS (1)
  - Eyelid pain [Unknown]
